FAERS Safety Report 13555501 (Version 1)
Quarter: 2017Q2

REPORT INFORMATION
  Report Type: Spontaneous
  Country: IT (occurrence: IT)
  Receive Date: 20170517
  Receipt Date: 20170517
  Transmission Date: 20170830
  Serious: Yes (Other)
  Sender: FDA-Public Use
  Company Number: IT-JNJFOC-20170513774

PATIENT
  Age: 55 Year
  Sex: Female

DRUGS (9)
  1. PAROXETINE. [Concomitant]
     Active Substance: PAROXETINE
     Route: 048
     Dates: start: 2015
  2. FLAGYL [Concomitant]
     Active Substance: METRONIDAZOLE\METRONIDAZOLE HYDROCHLORIDE
     Route: 048
     Dates: start: 2015
  3. ANSIOLIN [Concomitant]
     Active Substance: DIAZEPAM
     Route: 048
     Dates: start: 2015
  4. OSIPINE [Concomitant]
     Active Substance: BARNIDIPINE HYDROCHLORIDE
     Route: 065
     Dates: start: 2015
  5. CIPROXIN [Concomitant]
     Active Substance: CIPROFLOXACIN
     Route: 065
     Dates: start: 201704, end: 201705
  6. REMICADE [Suspect]
     Active Substance: INFLIXIMAB
     Indication: CROHN^S DISEASE
     Route: 042
  7. POTASSIUM CHLORIDE. [Concomitant]
     Active Substance: POTASSIUM CHLORIDE
     Route: 048
     Dates: start: 2015
  8. CANDESARTAN. [Concomitant]
     Active Substance: CANDESARTAN
     Route: 065
     Dates: start: 2015
  9. REMICADE [Suspect]
     Active Substance: INFLIXIMAB
     Indication: CROHN^S DISEASE
     Dosage: DOSE NUMBER 14
     Route: 042
     Dates: start: 20170511, end: 20170511

REACTIONS (4)
  - Agitation [Recovered/Resolved]
  - Infusion related reaction [Recovered/Resolved]
  - Dyspnoea [Recovered/Resolved]
  - Hypotension [Recovered/Resolved]

NARRATIVE: CASE EVENT DATE: 20170511
